FAERS Safety Report 9555835 (Version 1)
Quarter: 2013Q3

REPORT INFORMATION
  Report Type: Spontaneous
  Country: US (occurrence: US)
  Receive Date: 20130926
  Receipt Date: 20130926
  Transmission Date: 20140515
  Serious: Yes (Other)
  Sender: FDA-Public Use
  Company Number: US-JNJFOC-20130912289

PATIENT
  Age: 83 Year
  Sex: Male
  Weight: 76.2 kg

DRUGS (3)
  1. XARELTO [Suspect]
     Indication: CEREBROVASCULAR ACCIDENT PROPHYLAXIS
     Route: 048
     Dates: start: 201308
  2. XARELTO [Suspect]
     Indication: ATRIAL FIBRILLATION
     Route: 048
     Dates: start: 201308
  3. NADOLOL [Concomitant]
     Indication: CARDIAC DISORDER
     Dosage: AT NIGHT TIME
     Route: 048
     Dates: start: 201308

REACTIONS (4)
  - Wound haemorrhage [Recovered/Resolved]
  - Laceration [Recovered/Resolved]
  - Bleeding time prolonged [Recovered/Resolved]
  - Lower extremity mass [Recovered/Resolved]
